FAERS Safety Report 9554214 (Version 1)
Quarter: 2013Q3

REPORT INFORMATION
  Report Type: Spontaneous
  Country: AT (occurrence: AT)
  Receive Date: 20130925
  Receipt Date: 20130925
  Transmission Date: 20140515
  Serious: Yes (Death, Hospitalization)
  Sender: FDA-Public Use
  Company Number: AT-BAYER-2013-114184

PATIENT
  Age: 95 Year
  Sex: Female

DRUGS (3)
  1. XARELTO [Suspect]
     Indication: ATRIAL FIBRILLATION
     Dosage: 20 MG, QD
  2. XARELTO [Interacting]
     Indication: CEREBROVASCULAR ACCIDENT PROPHYLAXIS
  3. ASPIRIN 100 MG-TABLETTEN [Interacting]
     Dosage: 100 MG, QD

REACTIONS (3)
  - Gastrointestinal haemorrhage [Recovered/Resolved]
  - Cardiac arrest [Fatal]
  - Drug interaction [None]
